FAERS Safety Report 8571331 (Version 4)
Quarter: 2013Q1

REPORT INFORMATION
  Report Type: Spontaneous
  Country: CA (occurrence: CA)
  Receive Date: 20120521
  Receipt Date: 20130111
  Transmission Date: 20140127
  Serious: Yes (Death, Other)
  Sender: FDA-Public Use
  Company Number: PHHY2012CA012412

PATIENT
  Sex: Female

DRUGS (2)
  1. AFINITOR [Suspect]
     Indication: PANCREATIC NEUROENDOCRINE TUMOUR
     Dosage: 10 MG, EVERY DAY
     Route: 048
     Dates: start: 20110108, end: 20120107
  2. SANDOSTATIN LAR [Suspect]
     Indication: PANCREATIC NEUROENDOCRINE TUMOUR
     Dosage: 50 MG, ONCE A MONTH
     Route: 030
     Dates: start: 20110308

REACTIONS (9)
  - Death [Fatal]
  - Cardiac failure [Unknown]
  - Pulmonary oedema [Unknown]
  - Fatigue [Unknown]
  - Malaise [Unknown]
  - Dyspnoea [Unknown]
  - Asthenia [Unknown]
  - Lung disorder [Unknown]
  - Generalised oedema [Unknown]
